FAERS Safety Report 23125020 (Version 1)
Quarter: 2023Q4

REPORT INFORMATION
  Report Type: Spontaneous
  Country: US (occurrence: US)
  Receive Date: 20231030
  Receipt Date: 20231030
  Transmission Date: 20240109
  Serious: No
  Sender: FDA-Public Use
  Company Number: US-EPIHEALTH-2023-US-010741

PATIENT
  Sex: 0

DRUGS (1)
  1. RHOFADE [Suspect]
     Active Substance: OXYMETAZOLINE HYDROCHLORIDE
     Indication: Product used for unknown indication
     Dosage: APPLIED TO FACE
     Route: 061
     Dates: start: 20230420, end: 20230421

REACTIONS (6)
  - Urticaria [Recovering/Resolving]
  - Swelling face [Recovering/Resolving]
  - Rash pruritic [Recovering/Resolving]
  - Pharyngeal swelling [Recovering/Resolving]
  - Malaise [Recovering/Resolving]
  - Erythema [Recovering/Resolving]

NARRATIVE: CASE EVENT DATE: 20230422
